FAERS Safety Report 8845344 (Version 1)
Quarter: 2012Q4

REPORT INFORMATION
  Report Type: Spontaneous
  Country: None (occurrence: None)
  Receive Date: 20121015
  Receipt Date: 20121015
  Transmission Date: 20130627
  Serious: Yes (Death)
  Sender: FDA-Public Use
  Company Number: 2012DZ0324

PATIENT
  Age: 4 Year
  Sex: Female

DRUGS (1)
  1. KINERET [Suspect]
     Indication: STILL^S DISEASE
     Route: 058
     Dates: start: 20120616, end: 20120822

REACTIONS (2)
  - Histiocytosis haematophagic [None]
  - Hepatitis A [None]
